FAERS Safety Report 17954951 (Version 7)
Quarter: 2020Q4

REPORT INFORMATION
  Report Type: Spontaneous
  Country: CA (occurrence: CA)
  Receive Date: 20200629
  Receipt Date: 20201123
  Transmission Date: 20210113
  Serious: Yes (Hospitalization, Other)
  Sender: FDA-Public Use
  Company Number: CA-AKCEA THERAPEUTICS-2020IS001222

PATIENT
  Age: 30 Year
  Sex: Male
  Weight: 86.18 kg

DRUGS (9)
  1. TEGSEDI [Suspect]
     Active Substance: INOTERSEN SODIUM
     Indication: HEREDITARY NEUROPATHIC AMYLOIDOSIS
     Route: 058
     Dates: start: 201803
  2. DIFLUNISAL. [Concomitant]
     Active Substance: DIFLUNISAL
     Route: 048
     Dates: start: 201711
  3. ISSD (INTEGRATED SYRINGE SAFETY DEVICE) [Suspect]
     Active Substance: DEVICE
  4. GABAPENTIN. [Concomitant]
     Active Substance: GABAPENTIN
     Route: 048
  5. RABEPRAZOLE [Concomitant]
     Active Substance: RABEPRAZOLE
     Route: 048
  6. VITAMIN A /00056001/ [Concomitant]
     Active Substance: RETINOL
     Dates: start: 201803
  7. TEA, GREEN [Concomitant]
     Active Substance: GREEN TEA LEAF
     Route: 048
  8. GABAPENTIN. [Concomitant]
     Active Substance: GABAPENTIN
  9. VITAMINS WITH MINERALS [Concomitant]
     Active Substance: MINERALS\VITAMINS
     Dates: start: 201801

REACTIONS (10)
  - Prealbumin decreased [Not Recovered/Not Resolved]
  - Chills [Not Recovered/Not Resolved]
  - Blood creatine phosphokinase increased [Unknown]
  - Vitamin A decreased [Unknown]
  - Muscle spasms [Not Recovered/Not Resolved]
  - Fatigue [Not Recovered/Not Resolved]
  - Vitreous floaters [Not Recovered/Not Resolved]
  - Vitrectomy [Recovered/Resolved]
  - Vision blurred [Recovered/Resolved]
  - Eye disorder [Recovered/Resolved with Sequelae]

NARRATIVE: CASE EVENT DATE: 201803
